FAERS Safety Report 7041928-6 (Version None)
Quarter: 2010Q4

REPORT INFORMATION
  Report Type: 
  Country: None (occurrence: None)
  Receive Date: 20101013
  Receipt Date: 20100628
  Transmission Date: 20110411
  Serious: No
  Sender: FDA-Public Use
  Company Number: US-ASTRAZENECA-2010SE30031

PATIENT
  Sex: Female

DRUGS (2)
  1. SYMBICORT [Suspect]
     Indication: CHRONIC OBSTRUCTIVE PULMONARY DISEASE
     Dosage: 1 PUFF TWO TIMES A DAY, TOTAL DAILY DOSE 160
     Route: 055
  2. SYMBICORT [Suspect]
     Dosage: 2 PUFFS IN THE MORNING
     Route: 055
     Dates: start: 20100628

REACTIONS (2)
  - INCORRECT DOSE ADMINISTERED [None]
  - TREMOR [None]
